FAERS Safety Report 9595738 (Version 4)
Quarter: 2014Q1

REPORT INFORMATION
  Report Type: Report from Study
  Country: DE (occurrence: DE)
  Receive Date: 20131004
  Receipt Date: 20140106
  Transmission Date: 20141002
  Serious: Yes (Life-Threatening)
  Sender: FDA-Public Use
  Company Number: PHHO2013DE012581

PATIENT
  Sex: 0

DRUGS (3)
  1. FTY 720 [Suspect]
     Indication: MULTIPLE SCLEROSIS
     Dosage: 0.5 MG, QD
     Route: 048
     Dates: start: 20110318, end: 20130725
  2. URBASON /GFR/ [Suspect]
     Indication: MULTIPLE SCLEROSIS RELAPSE
     Dosage: 1 G, UNK
     Route: 042
     Dates: start: 20130820, end: 20130822
  3. URBASON /GFR/ [Suspect]
     Dosage: 2 G, UNK
     Route: 042
     Dates: start: 20130903, end: 20130907

REACTIONS (1)
  - Central nervous system lesion [Recovered/Resolved]
